FAERS Safety Report 4512378-9 (Version None)
Quarter: 2004Q4

REPORT INFORMATION
  Report Type: 
  Country: None (occurrence: None)
  Receive Date: 20041123
  Receipt Date: 20041116
  Transmission Date: 20050328
  Serious: No
  Sender: FDA-Public Use
  Company Number: 2004SE06369

PATIENT
  Age: 54 Year
  Sex: Male

DRUGS (4)
  1. AMIAS [Suspect]
     Indication: HYPERTENSION
     Dosage: 2 MG BID PO
     Route: 048
     Dates: start: 20040921, end: 20040101
  2. AMIODARONE [Concomitant]
  3. WARFARIN SODIUM [Concomitant]
  4. SIMVASTATIN [Concomitant]

REACTIONS (1)
  - ERECTILE DYSFUNCTION [None]
